FAERS Safety Report 9972327 (Version 1)
Quarter: 2014Q1

REPORT INFORMATION
  Report Type: Report from Study
  Country: US (occurrence: US)
  Receive Date: 20140306
  Receipt Date: 20140306
  Transmission Date: 20141002
  Serious: No
  Sender: FDA-Public Use
  Company Number: US-ABBVIE-13P-163-1151453-00

PATIENT
  Age: 44 Year
  Sex: Female

DRUGS (11)
  1. HUMIRA [Suspect]
     Indication: PSORIASIS
     Dates: end: 20130923
  2. ALIGN [Concomitant]
     Indication: BOWEL MOVEMENT IRREGULARITY
  3. VITAMIN D3 [Concomitant]
     Indication: BONE DISORDER
     Dosage: 2000 UNITS DAILY
  4. COLACE [Concomitant]
     Indication: PRODUCT USED FOR UNKNOWN INDICATION
  5. FLUOCINOLONE [Concomitant]
     Indication: PSORIASIS
  6. CLOBETASOL [Concomitant]
     Indication: PSORIASIS
     Dosage: 0/5%
     Route: 061
  7. RISPERDAL [Concomitant]
     Indication: MENTAL DISORDER
  8. GABAPENTIN [Concomitant]
     Indication: MENTAL DISORDER
  9. LORATADINE [Concomitant]
     Indication: HYPERSENSITIVITY
     Dosage: 10 MG DAILY
  10. BENZTROPINE [Concomitant]
     Indication: PRODUCT USED FOR UNKNOWN INDICATION
  11. MULTIVITAMIN [Concomitant]
     Indication: PRODUCT USED FOR UNKNOWN INDICATION
     Dosage: DAILY

REACTIONS (3)
  - Injection site papule [Not Recovered/Not Resolved]
  - Injection site erythema [Not Recovered/Not Resolved]
  - Psoriasis [Not Recovered/Not Resolved]
